FAERS Safety Report 6473212-3 (Version None)
Quarter: 2009Q4

REPORT INFORMATION
  Report Type: 
  Country: None (occurrence: None)
  Receive Date: 20091204
  Receipt Date: 20080827
  Transmission Date: 20100525
  Serious: Yes (Hospitalization)
  Sender: FDA-Public Use
  Company Number: US-ELI_LILLY_AND_COMPANY-US200808003332

PATIENT
  Sex: Female
  Weight: 54.875 kg

DRUGS (15)
  1. TERIPARATIDE [Suspect]
     Indication: OSTEOPOROSIS
     Dosage: 20 UG, DAILY (1/D)
     Route: 058
     Dates: start: 20060922
  2. TYLENOL                                 /SCH/ [Concomitant]
     Dosage: 500 MG, 3/D
  3. REQUIP [Concomitant]
     Indication: POOR QUALITY SLEEP
     Dosage: 0.5 MEQ, DAILY (1/D)
  4. PREDNISONE [Concomitant]
     Indication: ARTERITIS
     Dosage: 20 MG, DAILY (1/D)
  5. LEVOTHYROXINE SODIUM [Concomitant]
     Indication: HYPOTHYROIDISM
     Dosage: 0.05 MG, DAILY (1/D)
  6. COUMADIN [Concomitant]
     Indication: ATRIAL FIBRILLATION
     Dosage: 4 MG, UNK
  7. COUMADIN [Concomitant]
     Dosage: 3 MG, UNK
  8. MULTI-VITAMIN [Concomitant]
     Indication: VITAMIN SUPPLEMENTATION
     Dosage: UNK, DAILY (1/D)
  9. CALCIUM W/VITAMIN D NOS [Concomitant]
     Indication: OSTEOPOROSIS
     Dosage: 500 MG, DAILY (1/D)
  10. LASIX [Concomitant]
     Dosage: 20 MG, DAILY (1/D)
  11. TENORMIN [Concomitant]
     Dosage: 25 MG, DAILY (1/D)
     Route: 042
  12. FOLIC ACID [Concomitant]
     Dosage: 1 MG, DAILY (1/D)
  13. METHOTREXATE [Concomitant]
     Dosage: 19.5 MG, WEEKLY (1/W)
  14. HYDROCORTISONE [Concomitant]
     Indication: RASH
     Dosage: 20 MG, DAILY (1/D)
     Route: 061
  15. VITAMIN B-12 [Concomitant]
     Dosage: 1000 UG, MONTHLY (1/M)

REACTIONS (1)
  - OESOPHAGEAL CANDIDIASIS [None]
